FAERS Safety Report 6638437-2 (Version None)
Quarter: 2010Q1

REPORT INFORMATION
  Report Type: 
  Country: None (occurrence: None)
  Receive Date: 20100317
  Receipt Date: 20100311
  Transmission Date: 20100710
  Serious: Yes (Death)
  Sender: FDA-Public Use
  Company Number: US-ELI_LILLY_AND_COMPANY-US200903004290

PATIENT
  Age: 78 Year
  Sex: Female

DRUGS (3)
  1. GEMZAR [Suspect]
     Indication: PANCREATIC CARCINOMA NON-RESECTABLE
     Dosage: 1000 MG/M2, OTHER
     Route: 042
  2. IRINOTECAN [Concomitant]
     Indication: PANCREATIC CARCINOMA NON-RESECTABLE
     Dosage: 100 MG/M2, OTHER
     Route: 042
  3. CELECOXIB [Concomitant]
     Indication: PANCREATIC CARCINOMA NON-RESECTABLE
     Dosage: 400 MG, 2/D
     Route: 048

REACTIONS (3)
  - DIARRHOEA [None]
  - NEUTROPENIA [None]
  - SEPSIS [None]
